FAERS Safety Report 12790522 (Version 3)
Quarter: 2017Q4

REPORT INFORMATION
  Report Type: Spontaneous
  Country: US (occurrence: US)
  Receive Date: 20160929
  Receipt Date: 20171024
  Transmission Date: 20180320
  Serious: Yes (Death)
  Sender: FDA-Public Use
  Company Number: US-ACTELION-A-US2016-142751

PATIENT
  Age: 51 Year
  Sex: Male

DRUGS (12)
  1. KETOCONAZOLE. [Concomitant]
     Active Substance: KETOCONAZOLE
  2. CHLORHEXIDINE [Concomitant]
     Active Substance: CHLORHEXIDINE
  3. AMOXICILLIN. [Concomitant]
     Active Substance: AMOXICILLIN
  4. FUROSEMIDE. [Concomitant]
     Active Substance: FUROSEMIDE
  5. CARVEDILOL. [Concomitant]
     Active Substance: CARVEDILOL
  6. SPIRONOLACTONE. [Concomitant]
     Active Substance: SPIRONOLACTONE
  7. TRACLEER [Suspect]
     Active Substance: BOSENTAN
     Indication: PULMONARY ARTERIAL HYPERTENSION
     Dosage: 125 MG, UNK
     Route: 048
  8. PROPAFENONE. [Concomitant]
     Active Substance: PROPAFENONE
  9. SODIUM SULFACETAMIDE [Concomitant]
     Active Substance: SULFACETAMIDE SODIUM
  10. QUINAPRIL. [Concomitant]
     Active Substance: QUINAPRIL
  11. DIGOXIN. [Concomitant]
     Active Substance: DIGOXIN
  12. DILTIAZEM. [Concomitant]
     Active Substance: DILTIAZEM

REACTIONS (3)
  - Urine odour abnormal [Recovered/Resolved]
  - Death [Fatal]
  - Drug dose omission [Recovered/Resolved]

NARRATIVE: CASE EVENT DATE: 201608
